FAERS Safety Report 19321964 (Version 4)
Quarter: 2021Q3

REPORT INFORMATION
  Report Type: Spontaneous
  Country: GB (occurrence: GB)
  Receive Date: 20210528
  Receipt Date: 20210726
  Transmission Date: 20211014
  Serious: Yes (Other)
  Sender: FDA-Public Use
  Company Number: US-SA-2021SA176870

PATIENT
  Age: 51 Year
  Sex: Male
  Weight: 53 kg

DRUGS (87)
  1. NICOTINE. [Suspect]
     Active Substance: NICOTINE
     Indication: DRUG THERAPY
     Dosage: UNK
  2. CALCIUM SALT NOT SPECIFIED [Suspect]
     Active Substance: CALCIUM
     Dosage: 1 DF, QD
  3. CALCIUM SALT NOT SPECIFIED [Suspect]
     Active Substance: CALCIUM
     Dosage: UNK, QD
  4. CALCIUM SALT NOT SPECIFIED [Suspect]
     Active Substance: CALCIUM
     Dosage: 1 DF, QD
  5. CALCIUM CARBONATE/COLECALCIFEROL [Suspect]
     Active Substance: CALCIUM CARBONATE\CHOLECALCIFEROL
     Dosage: 2 DF, QD
  6. PHENYLBUTAZONE [Suspect]
     Active Substance: PHENYLBUTAZONE
     Indication: HYPOVITAMINOSIS
     Dosage: 300 MG, QD
  7. CALCIUM;COLECALCIFEROL [Suspect]
     Active Substance: CALCIUM\CHOLECALCIFEROL
     Dosage: 8 DF, QD
  8. COLECALCIFEROL [Suspect]
     Active Substance: CHOLECALCIFEROL
     Dosage: 1 DF, QD
  9. COLECALCIFEROL [Suspect]
     Active Substance: CHOLECALCIFEROL
     Dosage: 1 DF, QD
  10. THIAMINE HYDROCHLORIDE. [Suspect]
     Active Substance: THIAMINE HYDROCHLORIDE
     Indication: NUTRITIONAL SUPPLEMENTATION
     Dosage: 1 DF
  11. CALCIUM/VITAMIN D [Suspect]
     Active Substance: CALCIUM\VITAMIN D
     Dosage: 2 DF, QD
  12. CALCIUM SALT NOT SPECIFIED [Suspect]
     Active Substance: CALCIUM
     Dosage: UNK, QD
  13. ETOPOSIDE. [Suspect]
     Active Substance: ETOPOSIDE
     Dosage: 360 MG (IN 1 LITER 2 BAGS (360 MG))
     Dates: start: 20200825, end: 20200825
  14. ETOPOSIDE. [Suspect]
     Active Substance: ETOPOSIDE
     Dosage: 360 MG
     Dates: start: 202007
  15. APREPITANT. [Suspect]
     Active Substance: APREPITANT
     Dosage: 125 MG, 1X
     Dates: start: 20200826
  16. APREPITANT. [Suspect]
     Active Substance: APREPITANT
     Dosage: 80 MG, (D2 (80MG), IN TOTAL)
     Dates: start: 20200826
  17. PHENYLBUTAZONE [Suspect]
     Active Substance: PHENYLBUTAZONE
     Dosage: 300 MG, QD
  18. COLECALCIFEROL [Suspect]
     Active Substance: CHOLECALCIFEROL
     Dosage: 1 DF, QD
  19. SODIUM CHLORIDE. [Suspect]
     Active Substance: SODIUM CHLORIDE
     Dosage: UNK
     Dates: start: 20200825, end: 20200825
  20. CALCIUM SALT NOT SPECIFIED [Suspect]
     Active Substance: CALCIUM
     Dosage: UNK, QD
  21. CALCIUM SALT NOT SPECIFIED [Suspect]
     Active Substance: CALCIUM
     Dosage: UNK, QD
  22. ETOPOSIDE. [Suspect]
     Active Substance: ETOPOSIDE
     Indication: GERM CELL NEOPLASM
     Dosage: UNK
     Dates: start: 202007
  23. CALCIUM CARBONATE/COLECALCIFEROL [Suspect]
     Active Substance: CALCIUM CARBONATE\CHOLECALCIFEROL
     Dosage: 2 DF, QD
  24. CALCIUM CARBONATE/COLECALCIFEROL [Suspect]
     Active Substance: CALCIUM CARBONATE\CHOLECALCIFEROL
     Dosage: UNK UNK, QD
  25. CALCIUM CARBONATE/COLECALCIFEROL [Suspect]
     Active Substance: CALCIUM CARBONATE\CHOLECALCIFEROL
     Dosage: UNK, QD
  26. CALCIUM CARBONATE/COLECALCIFEROL [Suspect]
     Active Substance: CALCIUM CARBONATE\CHOLECALCIFEROL
     Dosage: UNK, QD
  27. DEXAMETHASONE. [Suspect]
     Active Substance: DEXAMETHASONE
     Indication: SUPPORTIVE CARE
     Dosage: 8 MG, QD
     Route: 048
     Dates: start: 20200825
  28. APREPITANT. [Suspect]
     Active Substance: APREPITANT
     Indication: SUPPORTIVE CARE
     Dosage: 125 MG (D1) SINGLE (D1 (125 MG)/125 MG, 1X; IN TOTAL) REGIMEN #1
     Dates: start: 20200826
  29. APREPITANT. [Suspect]
     Active Substance: APREPITANT
     Dosage: 125 MG, (D1 (125 MG)
     Dates: start: 20200826
  30. PROPYPHENAZONE [Suspect]
     Active Substance: PROPYPHENAZONE
     Dosage: 300 MG, QD
  31. COLECALCIFEROL [Suspect]
     Active Substance: CHOLECALCIFEROL
     Dosage: 1 DF
  32. SODIUM CHLORIDE. [Suspect]
     Active Substance: SODIUM CHLORIDE
     Indication: MEDICATION DILUTION
     Dosage: 0.9 %
     Dates: start: 20200825, end: 20200825
  33. SODIUM CHLORIDE. [Suspect]
     Active Substance: SODIUM CHLORIDE
     Dosage: 0.9 %
     Dates: start: 20200825, end: 20200825
  34. CALCIUM/VITAMIN D [Suspect]
     Active Substance: CALCIUM\VITAMIN D
     Dosage: 1 DF
  35. CALCIUM SALT NOT SPECIFIED [Suspect]
     Active Substance: CALCIUM
     Dosage: 1 DF, QD
  36. DOMPERIDONE [Suspect]
     Active Substance: DOMPERIDONE
     Dosage: 8 MG, QD
     Route: 048
     Dates: start: 20200925
  37. DOMPERIDONE [Suspect]
     Active Substance: DOMPERIDONE
     Dosage: 8 MG, QD
     Route: 048
     Dates: start: 20200925
  38. CALCIUM CARBONATE/COLECALCIFEROL [Suspect]
     Active Substance: CALCIUM CARBONATE\CHOLECALCIFEROL
     Dosage: 2 DF
  39. CALCIUM CARBONATE/COLECALCIFEROL [Suspect]
     Active Substance: CALCIUM CARBONATE\CHOLECALCIFEROL
     Dosage: 2 DF
     Route: 048
  40. PHENYLBUTAZONE [Suspect]
     Active Substance: PHENYLBUTAZONE
     Dosage: 300 MG, QD
  41. COLECALCIFEROL [Suspect]
     Active Substance: CHOLECALCIFEROL
     Indication: MINERAL SUPPLEMENTATION
     Dosage: 8 DF, QD
  42. COLECALCIFEROL [Suspect]
     Active Substance: CHOLECALCIFEROL
     Indication: MINERAL SUPPLEMENTATION
     Dosage: UNK, QD
  43. CALCIUM SALT NOT SPECIFIED [Suspect]
     Active Substance: CALCIUM
     Dosage: 8 DF, QD
  44. CALCIUM SALT NOT SPECIFIED [Suspect]
     Active Substance: CALCIUM
     Dosage: UNK, QD
  45. DOMPERIDONE [Suspect]
     Active Substance: DOMPERIDONE
     Dosage: 30 MG, QD
     Route: 048
     Dates: start: 20200825
  46. CALCIUM CARBONATE/COLECALCIFEROL [Suspect]
     Active Substance: CALCIUM CARBONATE\CHOLECALCIFEROL
     Dosage: UNK
  47. CALCIUM CARBONATE/COLECALCIFEROL [Suspect]
     Active Substance: CALCIUM CARBONATE\CHOLECALCIFEROL
     Dosage: 1 DF, QD
  48. CALCIUM CARBONATE/COLECALCIFEROL [Suspect]
     Active Substance: CALCIUM CARBONATE\CHOLECALCIFEROL
     Dosage: 1 DF, QD
  49. CALCIUM CARBONATE/COLECALCIFEROL [Suspect]
     Active Substance: CALCIUM CARBONATE\CHOLECALCIFEROL
     Dosage: 1 DF
  50. APREPITANT. [Suspect]
     Active Substance: APREPITANT
     Indication: MINERAL SUPPLEMENTATION
     Dosage: 80 MG, (D2) SINGLE (IN TOTAL) REGIMEN #2
     Dates: start: 20200825
  51. APREPITANT. [Suspect]
     Active Substance: APREPITANT
     Dosage: 80 MG
     Dates: start: 20200826
  52. APREPITANT. [Suspect]
     Active Substance: APREPITANT
     Dosage: UNK, QD
     Dates: start: 20200826
  53. CISPLATIN. [Suspect]
     Active Substance: CISPLATIN
     Indication: GERM CELL NEOPLASM
     Dosage: 79 MG IN LITER
     Dates: start: 20200825
  54. COLECALCIFEROL [Suspect]
     Active Substance: CHOLECALCIFEROL
     Dosage: 2 DF, QD
  55. THIAMINE. [Suspect]
     Active Substance: THIAMINE
     Dosage: 300 MG, QD
  56. CALCIUM SALT NOT SPECIFIED [Suspect]
     Active Substance: CALCIUM
     Indication: MINERAL SUPPLEMENTATION
     Dosage: UNK
  57. ETOPOSIDE. [Suspect]
     Active Substance: ETOPOSIDE
     Dosage: UNK
     Dates: start: 202007
  58. CALCIUM CARBONATE/COLECALCIFEROL [Suspect]
     Active Substance: CALCIUM CARBONATE\CHOLECALCIFEROL
     Dosage: 1 DF, QD
  59. DEXAMETHASONE. [Suspect]
     Active Substance: DEXAMETHASONE
     Dosage: 8 MG, QD
     Route: 048
     Dates: start: 20200825
  60. APREPITANT. [Suspect]
     Active Substance: APREPITANT
     Dosage: 125 MG D1 (125 MG); REGIMEN #3
     Dates: start: 20200825
  61. APREPITANT. [Suspect]
     Active Substance: APREPITANT
     Dosage: 80 MG
     Dates: start: 20200825
  62. PROPYPHENAZONE [Suspect]
     Active Substance: PROPYPHENAZONE
     Indication: HYPOVITAMINOSIS
     Dosage: 300 MG, QD
  63. PROPYPHENAZONE [Suspect]
     Active Substance: PROPYPHENAZONE
     Dosage: 300 MG, QD
  64. COLECALCIFEROL [Suspect]
     Active Substance: CHOLECALCIFEROL
     Dosage: 8 DF, QD
  65. COLECALCIFEROL [Suspect]
     Active Substance: CHOLECALCIFEROL
     Dosage: 8 DF, QD
  66. NICOTINE. [Suspect]
     Active Substance: NICOTINE
     Dosage: 21 MG, QD
  67. SODIUM CHLORIDE. [Suspect]
     Active Substance: SODIUM CHLORIDE
     Dosage: UNK
     Dates: start: 20200825, end: 20200825
  68. CALCIUM/VITAMIN D [Suspect]
     Active Substance: CALCIUM\VITAMIN D
     Dosage: 8 DF, QD
  69. CALCIUM/VITAMIN D [Suspect]
     Active Substance: CALCIUM\VITAMIN D
     Dosage: UNK, QD
  70. CALCIUM SALT NOT SPECIFIED [Suspect]
     Active Substance: CALCIUM
     Dosage: 1 DF, QD
  71. CALCIUM SALT NOT SPECIFIED [Suspect]
     Active Substance: CALCIUM
     Dosage: 2 DF, QD
  72. DOMPERIDONE [Suspect]
     Active Substance: DOMPERIDONE
     Indication: SUPPORTIVE CARE
     Dosage: 30 MG, PRN
     Route: 048
     Dates: start: 20200825
  73. ETOPOSIDE. [Suspect]
     Active Substance: ETOPOSIDE
     Dosage: 360 MG (IN 1 LITER 2 BAGS (360 MG))
     Dates: start: 20200825, end: 20200825
  74. CALCIUM CARBONATE/COLECALCIFEROL [Suspect]
     Active Substance: CALCIUM CARBONATE\CHOLECALCIFEROL
     Dosage: 2 DF, QD
  75. CALCIUM;COLECALCIFEROL [Suspect]
     Active Substance: CALCIUM\CHOLECALCIFEROL
     Indication: MINERAL SUPPLEMENTATION
     Dosage: UNK, QD
  76. CALCIUM/VITAMIN D [Suspect]
     Active Substance: CALCIUM\VITAMIN D
     Indication: MINERAL SUPPLEMENTATION
     Dosage: UNK, QD
  77. CALCIUM/VITAMIN D [Suspect]
     Active Substance: CALCIUM\VITAMIN D
     Dosage: 8 DF, QD
  78. CALCIUM SALT NOT SPECIFIED [Suspect]
     Active Substance: CALCIUM
     Dosage: UNK, QD
  79. CALCIUM SALT NOT SPECIFIED [Suspect]
     Active Substance: CALCIUM
     Dosage: 8 DF, QD
  80. CALCIUM SALT NOT SPECIFIED [Suspect]
     Active Substance: CALCIUM
     Dosage: UNK, QD
  81. THIAMINE MONONITRATE [Suspect]
     Active Substance: THIAMINE MONONITRATE
     Indication: HYPOVITAMINOSIS
     Dosage: 300 MG, QD
  82. THIAMINE MONONITRATE [Suspect]
     Active Substance: THIAMINE MONONITRATE
     Dosage: UNK
  83. CALCIUM CARBONATE/COLECALCIFEROL [Suspect]
     Active Substance: CALCIUM CARBONATE\CHOLECALCIFEROL
     Indication: MINERAL SUPPLEMENTATION
     Dosage: 1 DF, QD
  84. ONDANSETRON [Suspect]
     Active Substance: ONDANSETRON
     Indication: LAXATIVE SUPPORTIVE CARE
     Dosage: (16 MG, 1 D)/16MG QD, ORODISPERSIBLE FILM
     Route: 048
     Dates: start: 20200825
  85. COLECALCIFEROL [Suspect]
     Active Substance: CHOLECALCIFEROL
     Dosage: 1 DF, QD
  86. COLECALCIFEROL [Suspect]
     Active Substance: CHOLECALCIFEROL
     Dosage: 8 DF, QD
  87. THIAMINE. [Suspect]
     Active Substance: THIAMINE
     Indication: HYPOVITAMINOSIS
     Dosage: UNK

REACTIONS (1)
  - Hypersensitivity [Recovered/Resolved]

NARRATIVE: CASE EVENT DATE: 20200825
